FAERS Safety Report 9466054 (Version 1)
Quarter: 2013Q3

REPORT INFORMATION
  Report Type: Spontaneous
  Country: US (occurrence: US)
  Receive Date: 20130820
  Receipt Date: 20130820
  Transmission Date: 20140515
  Serious: No
  Sender: FDA-Public Use
  Company Number: US-009507513-1308USA008198

PATIENT
  Sex: Female
  Weight: 53.52 kg

DRUGS (2)
  1. MIRALAX [Suspect]
     Indication: BOWEL MOVEMENT IRREGULARITY
     Dosage: 17 G, HS
     Route: 048
     Dates: start: 2009
  2. MIRALAX [Suspect]
     Indication: MEDICAL OBSERVATION

REACTIONS (2)
  - Incorrect drug administration duration [Unknown]
  - Product taste abnormal [Unknown]
